FAERS Safety Report 6823442-3 (Version None)
Quarter: 2010Q3

REPORT INFORMATION
  Report Type: 
  Country: None (occurrence: None)
  Receive Date: 20100708
  Receipt Date: 20100623
  Transmission Date: 20110219
  Serious: Yes (Hospitalization)
  Sender: FDA-Public Use
  Company Number: PHHY2010US41182

PATIENT
  Sex: Male
  Weight: 86 kg

DRUGS (9)
  1. ZOMETA [Suspect]
  2. TAK-700 [Suspect]
     Indication: PROSTATE CANCER
     Dosage: 600 MG, QD
     Route: 048
     Dates: start: 20100315, end: 20100501
  3. PREDNISONE [Suspect]
     Indication: PROSTATE CANCER
     Dosage: UNK
     Route: 048
     Dates: start: 20100315, end: 20100501
  4. ADVAIR DISKUS 100/50 [Concomitant]
  5. XALATAN [Concomitant]
  6. PRILOSEC [Concomitant]
  7. SONATA [Concomitant]
  8. ALBUTEROL [Concomitant]
  9. ASPIRIN [Concomitant]

REACTIONS (23)
  - ASTHENIA [None]
  - BLOOD PRESSURE DIASTOLIC DECREASED [None]
  - BLOOD PRESSURE SYSTOLIC INCREASED [None]
  - BLOOD SODIUM DECREASED [None]
  - CHILLS [None]
  - CONSTIPATION [None]
  - ELECTROCARDIOGRAM ST-T CHANGE [None]
  - ERYTHEMA INFECTIOSUM [None]
  - FATIGUE [None]
  - GASTROINTESTINAL INFECTION [None]
  - HUMAN HERPES VIRUS 6 SEROLOGY POSITIVE [None]
  - HYPERHIDROSIS [None]
  - LYMPHOCYTE COUNT DECREASED [None]
  - LYMPHOCYTE COUNT INCREASED [None]
  - MALAISE [None]
  - MONOCYTE COUNT INCREASED [None]
  - NEUTROPENIA [None]
  - PROCTALGIA [None]
  - PYREXIA [None]
  - RASH MACULO-PAPULAR [None]
  - SINUS TACHYCARDIA [None]
  - TREMOR [None]
  - WHITE BLOOD CELL COUNT DECREASED [None]
